FAERS Safety Report 8486868-0 (Version None)
Quarter: 2012Q3

REPORT INFORMATION
  Report Type: 
  Country: None (occurrence: None)
  Receive Date: 20120704
  Receipt Date: 20120628
  Transmission Date: 20120928
  Serious: No
  Sender: FDA-Public Use
  Company Number: US-BAYER-2012-065074

PATIENT
  Age: 50 Year
  Sex: Male
  Weight: 79 kg

DRUGS (4)
  1. ALEVE (CAPLET) [Suspect]
     Indication: ANALGESIC THERAPY
     Dosage: 1 DF, PRN
     Route: 048
     Dates: start: 20120605
  2. LITHIUM CARBONATE [Concomitant]
  3. AMILORIDE HYDROCHLORIDE [Concomitant]
  4. AMILORIDE HYDROCHLORIDE [Concomitant]

REACTIONS (3)
  - INSOMNIA [None]
  - PALPITATIONS [None]
  - PANIC ATTACK [None]
